FAERS Safety Report 6553515-4 (Version None)
Quarter: 2010Q1

REPORT INFORMATION
  Report Type: 
  Country: None (occurrence: None)
  Receive Date: 20100127
  Receipt Date: 20100122
  Transmission Date: 20100710
  Serious: Yes (Death, Hospitalization)
  Sender: FDA-Public Use
  Company Number: SI-ROCHE-630606

PATIENT
  Sex: Female
  Weight: 64 kg

DRUGS (6)
  1. CAPECITABINE [Suspect]
     Route: 048
     Dates: start: 20090320, end: 20090419
  2. LEVOTHYROXINE SODIUM [Concomitant]
     Dates: start: 20060101, end: 20090423
  3. NAKLOFEN DUO [Concomitant]
     Dates: end: 20090423
  4. NEXIUM [Concomitant]
     Dates: end: 20090423
  5. REGLAN [Concomitant]
     Dates: start: 20090319, end: 20090423
  6. HALDOL [Concomitant]
     Dates: start: 20090309, end: 20090423

REACTIONS (3)
  - NEUTROPENIA [None]
  - SEPSIS [None]
  - VOMITING [None]
